FAERS Safety Report 7557294-3 (Version None)
Quarter: 2011Q2

REPORT INFORMATION
  Report Type: 
  Country: None (occurrence: None)
  Receive Date: 20110620
  Receipt Date: 20081201
  Transmission Date: 20111010
  Serious: Yes (Hospitalization)
  Sender: FDA-Public Use
  Company Number: PHHY2008US29491

PATIENT
  Sex: Male
  Weight: 81.3 kg

DRUGS (9)
  1. LASIX [Concomitant]
     Dosage: 40 MG, UNK
  2. ASPIRIN [Concomitant]
     Dosage: 81 MG, ONCE/SINGLE
  3. EXJADE [Suspect]
     Indication: MYELODYSPLASTIC SYNDROME
     Dosage: 1625 MG, QD
     Route: 048
     Dates: start: 20081010, end: 20081029
  4. METOPROLOL TARTRATE [Concomitant]
     Dosage: 50 MG, BID
  5. EXJADE [Suspect]
     Indication: IRON OVERLOAD
  6. FLOMAX [Concomitant]
     Dosage: 0.5 MG, ONCE/SINGLE
  7. BACTRIM DS [Concomitant]
  8. MULTI-VITAMINS [Concomitant]
  9. LIPITOR [Concomitant]
     Dosage: 40 MG, UNK

REACTIONS (13)
  - PNEUMATOSIS INTESTINALIS [None]
  - DIARRHOEA [None]
  - ASCITES [None]
  - COLONIC OBSTRUCTION [None]
  - DYSPEPSIA [None]
  - PERICARDIAL EFFUSION [None]
  - ABDOMINAL PAIN UPPER [None]
  - CONSTIPATION [None]
  - PLEURAL EFFUSION [None]
  - LEUKAEMIA [None]
  - CHOLELITHIASIS [None]
  - ABDOMINAL DISTENSION [None]
  - DIVERTICULUM [None]
